FAERS Safety Report 7486718-5 (Version None)
Quarter: 2011Q2

REPORT INFORMATION
  Report Type: 
  Country: None (occurrence: None)
  Receive Date: 20110517
  Receipt Date: 20110510
  Transmission Date: 20111010
  Serious: Yes (Other)
  Sender: FDA-Public Use
  Company Number: JP-PFIZER INC-2011093304

PATIENT
  Age: 69 Year
  Sex: Female

DRUGS (1)
  1. ZITHROMAX [Suspect]
     Dosage: 2 G, SINGLE
     Route: 048
     Dates: start: 20100701, end: 20100701

REACTIONS (1)
  - MYOCLONUS [None]
